FAERS Safety Report 8510674-1 (Version None)
Quarter: 2012Q3

REPORT INFORMATION
  Report Type: 
  Country: None (occurrence: None)
  Receive Date: 20120709
  Receipt Date: 20120709
  Transmission Date: 20120928
  Serious: Yes (Other)
  Sender: FDA-Public Use
  Company Number: None

PATIENT
  Age: 80 Year
  Sex: Male
  Weight: 72.5755 kg

DRUGS (1)
  1. LATANOPROST [Suspect]
     Dosage: ONE DROP BEFORE BED OPHTHALMIC
     Route: 047

REACTIONS (4)
  - PRODUCT SUBSTITUTION ISSUE [None]
  - UNEVALUABLE EVENT [None]
  - DISCOMFORT [None]
  - ERYTHEMA [None]
